FAERS Safety Report 4479846-X (Version None)
Quarter: 2004Q4

REPORT INFORMATION
  Report Type: 
  Country: None (occurrence: None)
  Receive Date: 20041018
  Receipt Date: 20041006
  Transmission Date: 20050328
  Serious: Yes (Hospitalization)
  Sender: FDA-Public Use
  Company Number: 1515-075

PATIENT
  Age: 24 Year
  Sex: Female

DRUGS (1)
  1. VENOFER [Suspect]
     Indication: IRON DEFICIENCY ANAEMIA
     Dosage: 500MG IV
     Route: 042
     Dates: start: 20040810

REACTIONS (8)
  - ABDOMINAL PAIN [None]
  - BUNDLE BRANCH BLOCK RIGHT [None]
  - DYSPNOEA [None]
  - HOT FLUSH [None]
  - MUSCLE RIGIDITY [None]
  - PAIN IN EXTREMITY [None]
  - TACHYCARDIA [None]
  - VERTIGO [None]
